FAERS Safety Report 10971575 (Version 1)
Quarter: 2015Q1

REPORT INFORMATION
  Report Type: Spontaneous
  Country: US (occurrence: None)
  Receive Date: 20150330
  Receipt Date: 20150330
  Transmission Date: 20150721
  Serious: Yes (Life-Threatening, Hospitalization, Disabling)
  Sender: FDA-Public Use
  Company Number: None

PATIENT
  Age: 52 Year
  Sex: Female
  Weight: 170.1 kg

DRUGS (24)
  1. FUROSEMIDE. [Concomitant]
     Active Substance: FUROSEMIDE
  2. SPIRONOLACTONE. [Concomitant]
     Active Substance: SPIRONOLACTONE
  3. LORATADINE. [Concomitant]
     Active Substance: LORATADINE
  4. VIT. E [Concomitant]
  5. FAMOTIDINE. [Concomitant]
     Active Substance: FAMOTIDINE
  6. GABAPENTIN. [Concomitant]
     Active Substance: GABAPENTIN
  7. LEVAQUIN [Suspect]
     Active Substance: LEVOFLOXACIN
     Indication: CELLULITIS
     Dosage: IV LIQUID  FORM, INTO A VEIN
     Route: 042
     Dates: start: 20090321, end: 20130720
  8. LEVAQUIN [Suspect]
     Active Substance: LEVOFLOXACIN
     Indication: LUNG INFECTION
     Dosage: IV LIQUID  FORM, INTO A VEIN
     Route: 042
     Dates: start: 20090321, end: 20130720
  9. CRESTOR [Concomitant]
     Active Substance: ROSUVASTATIN CALCIUM
  10. VIT. D, FOLIC ACID, VIT. B - COMPLEX [Concomitant]
     Active Substance: FOLIC ACID\VITAMINS
  11. EURERIN CREAM [Concomitant]
  12. NITROFURANTION MACROCRYSTALS [Concomitant]
     Active Substance: NITROFURANTOIN
  13. MORPHINE [Concomitant]
     Active Substance: MORPHINE
  14. MAGNESIUM [Concomitant]
     Active Substance: MAGNESIUM
  15. VIT B 12 [Concomitant]
  16. GLYBURIDE. [Concomitant]
     Active Substance: GLYBURIDE
  17. NYSTATIN. [Concomitant]
     Active Substance: NYSTATIN
  18. METOPROLOL TARTRATE. [Concomitant]
     Active Substance: METOPROLOL TARTRATE
  19. VIT B [Concomitant]
     Active Substance: VITAMINS
  20. ALLOPURINOL. [Suspect]
     Active Substance: ALLOPURINOL
  21. CLOTRIMAZOLE. [Concomitant]
     Active Substance: CLOTRIMAZOLE
  22. LEVOTHYROXINE [Concomitant]
     Active Substance: LEVOTHYROXINE
  23. AMIDARONE [Concomitant]
     Active Substance: AMIODARONE
  24. POTASSIUM [Concomitant]
     Active Substance: POTASSIUM

REACTIONS (67)
  - Neuropathy peripheral [None]
  - Decreased appetite [None]
  - Constipation [None]
  - Nasal congestion [None]
  - Carpal tunnel syndrome [None]
  - Angina pectoris [None]
  - Anaemia [None]
  - Cardiac failure congestive [None]
  - Anxiety [None]
  - Hypoaesthesia [None]
  - Connective tissue disorder [None]
  - Urinary tract infection [None]
  - Musculoskeletal stiffness [None]
  - Generalised oedema [None]
  - Lymphoedema [None]
  - Blood iron decreased [None]
  - Suicidal ideation [None]
  - Dysgeusia [None]
  - Malaise [None]
  - Purpura [None]
  - Tachycardia [None]
  - Visual impairment [None]
  - Confusional state [None]
  - Chronic obstructive pulmonary disease [None]
  - Night sweats [None]
  - Cellulitis [None]
  - Toxic epidermal necrolysis [None]
  - Urticaria [None]
  - Rash [None]
  - Food allergy [None]
  - Near drowning [None]
  - Tremor [None]
  - Dizziness [None]
  - Chronic fatigue syndrome [None]
  - Fibromyalgia [None]
  - Muscle twitching [None]
  - Nausea [None]
  - Infection [None]
  - Immune system disorder [None]
  - Drug hypersensitivity [None]
  - Syncope [None]
  - Gout [None]
  - Tendon rupture [None]
  - Psychotic disorder [None]
  - Joint stiffness [None]
  - Muscle spasms [None]
  - Blood magnesium decreased [None]
  - Blood potassium decreased [None]
  - Pain [None]
  - Tendonitis [None]
  - Tooth disorder [None]
  - Vitreous floaters [None]
  - Amnesia [None]
  - Arthralgia [None]
  - Female sexual dysfunction [None]
  - Paraesthesia [None]
  - Asthenia [None]
  - Atrial fibrillation [None]
  - Lung infection [None]
  - Muscle disorder [None]
  - Rotator cuff syndrome [None]
  - Panic attack [None]
  - Insomnia [None]
  - Hyperaesthesia [None]
  - Hypertension [None]
  - Oral candidiasis [None]
  - Thyroid disorder [None]

NARRATIVE: CASE EVENT DATE: 20090301
